FAERS Safety Report 8831689 (Version 3)
Quarter: 2013Q4

REPORT INFORMATION
  Report Type: Spontaneous
  Country: US (occurrence: US)
  Receive Date: 20121009
  Receipt Date: 20131112
  Transmission Date: 20140711
  Serious: Yes (Hospitalization, Disabling, Other)
  Sender: FDA-Public Use
  Company Number: US-009507513-0506USA01338

PATIENT
  Sex: Male
  Weight: 65.77 kg

DRUGS (22)
  1. FOSAMAX [Suspect]
     Indication: OSTEOPOROSIS
     Dosage: 10MGQD
     Route: 048
     Dates: start: 199601, end: 2003
  2. FOSAMAX [Suspect]
     Dosage: 70 MG, QW
     Route: 048
     Dates: start: 2003, end: 20060711
  3. FOSAMAX [Suspect]
     Dosage: 35 MG, QW
     Route: 048
     Dates: start: 20060711, end: 200701
  4. FOSAMAX [Suspect]
     Dosage: 70 MG, QW
     Route: 048
     Dates: start: 200701
  5. LUPRON DEPOT [Concomitant]
     Indication: PROSTATE CANCER METASTATIC
     Dosage: 7.5 MG, QM
     Route: 030
     Dates: start: 1989, end: 201006
  6. FLUTAMIDE [Concomitant]
     Indication: PROSTATE CANCER METASTATIC
     Dosage: 750-1050  MG
     Route: 048
     Dates: start: 198912, end: 201006
  7. CALCIUM (UNSPECIFIED) [Concomitant]
     Indication: OSTEOPENIA
  8. VITAMIN D (UNSPECIFIED) [Concomitant]
     Indication: OSTEOPENIA
     Dosage: UNK
     Dates: start: 1996
  9. NAPROSYN [Concomitant]
     Indication: OSTEOARTHRITIS
     Dosage: 250 MG, QD
     Route: 048
     Dates: start: 1989, end: 201003
  10. NAPROSYN [Concomitant]
     Indication: BACK PAIN
  11. ALENDRONATE SODIUM [Suspect]
     Indication: OSTEOPOROSIS
     Dosage: 70 MG, QW
     Route: 048
  12. CALCIUM (UNSPECIFIED) (+) VITAMIN D (UNSPECIFIED) [Concomitant]
     Indication: OSTEOPOROSIS
  13. CORTICOSTEROIDS (UNSPECIFIED) [Concomitant]
     Indication: BACK PAIN
     Dosage: UNK
     Route: 024
     Dates: start: 200808
  14. ELAVIL (AMITRIPTYLINE HYDROCHLORIDE) [Concomitant]
     Indication: BACK PAIN
  15. ELAVIL (AMITRIPTYLINE HYDROCHLORIDE) [Concomitant]
     Indication: NECK PAIN
  16. VICODIN [Concomitant]
     Indication: BACK PAIN
  17. VICODIN [Concomitant]
     Indication: NECK PAIN
  18. CITRICAL [Concomitant]
     Indication: OSTEOPOROSIS
  19. OS-CAL [Concomitant]
     Indication: OSTEOPOROSIS
  20. ERGOCALCIFEROL [Concomitant]
     Indication: VITAMIN D DEFICIENCY
  21. DARVOCET-N [Concomitant]
     Indication: BACK PAIN
  22. DARVOCET-N [Concomitant]
     Indication: NECK PAIN

REACTIONS (52)
  - Femur fracture [Not Recovered/Not Resolved]
  - Open reduction of fracture [Unknown]
  - Anaemia postoperative [Unknown]
  - Lumbar spinal stenosis [Not Recovered/Not Resolved]
  - Osteoporosis [Not Recovered/Not Resolved]
  - Femur fracture [Not Recovered/Not Resolved]
  - Femur fracture [Not Recovered/Not Resolved]
  - Spinal fusion surgery [Unknown]
  - Depression [Unknown]
  - Dehydration [Unknown]
  - Basal cell carcinoma [Unknown]
  - Basal cell carcinoma [Unknown]
  - Deep vein thrombosis [Unknown]
  - Arthritis [Not Recovered/Not Resolved]
  - Herpes zoster [Unknown]
  - Hypokalaemia [Unknown]
  - Herpes zoster [Unknown]
  - Groin infection [Unknown]
  - Reflux laryngitis [Unknown]
  - Sleep apnoea syndrome [Unknown]
  - Body height decreased [Unknown]
  - Spinal cord compression [Unknown]
  - Lymphopenia [Unknown]
  - Hypoprothrombinaemia [Unknown]
  - International normalised ratio abnormal [Unknown]
  - Anaemia [Unknown]
  - Myelodysplastic syndrome [Unknown]
  - Iron deficiency [Unknown]
  - Vitamin B12 deficiency [Unknown]
  - Haemolysis [Unknown]
  - Extrasystoles [Unknown]
  - Muscle strain [Recovering/Resolving]
  - Anaemia [Not Recovered/Not Resolved]
  - Lymphatic disorder [Unknown]
  - Cervical spinal stenosis [Unknown]
  - Hypercalciuria [Unknown]
  - Kyphosis [Unknown]
  - Scoliosis [Unknown]
  - Chest pain [Unknown]
  - Sciatica [Unknown]
  - Thrombocytopenia [Recovered/Resolved]
  - Hyperlipidaemia [Unknown]
  - Temporomandibular joint syndrome [Unknown]
  - Dysplastic naevus [Unknown]
  - Bladder polypectomy [Unknown]
  - Calcinosis [Unknown]
  - Arthralgia [Not Recovered/Not Resolved]
  - Abdominal pain [Unknown]
  - Pain in extremity [Unknown]
  - Oedema peripheral [Unknown]
  - Gastrooesophageal reflux disease [Unknown]
  - Diarrhoea [Unknown]
